FAERS Safety Report 7787763-2 (Version None)
Quarter: 2011Q3

REPORT INFORMATION
  Report Type: 
  Country: None (occurrence: None)
  Receive Date: 20110929
  Receipt Date: 20110922
  Transmission Date: 20111222
  Serious: Yes (Hospitalization)
  Sender: FDA-Public Use
  Company Number: US-GILEAD-2011-0044343

PATIENT

DRUGS (1)
  1. LETAIRIS [Suspect]
     Indication: PRODUCT USED FOR UNKNOWN INDICATION
     Dosage: 5 MG, QD
     Route: 048
     Dates: start: 20090911

REACTIONS (5)
  - BILIARY TRACT INFECTION FUNGAL [None]
  - DIALYSIS [None]
  - RETCHING [None]
  - DEHYDRATION [None]
  - ABDOMINAL PAIN UPPER [None]
